FAERS Safety Report 9780984 (Version 2)
Quarter: 2014Q1

REPORT INFORMATION
  Report Type: Spontaneous
  Country: US (occurrence: None)
  Receive Date: 20131220
  Receipt Date: 20140110
  Transmission Date: 20141002
  Serious: Yes (Death, Other)
  Sender: FDA-Public Use
  Company Number: AUR-APL-2013-10458

PATIENT
  Age: 62 Year
  Sex: Female

DRUGS (15)
  1. ALPRAZOLAM [Suspect]
     Indication: ANXIETY
     Dosage: HALF A TABLET OF 2MG IN DAYTIME AND 2MG AT NIGHT
     Route: 048
     Dates: start: 2013
  2. DONEPEZIL [Suspect]
     Indication: PRODUCT USED FOR UNKNOWN INDICATION
     Route: 048
     Dates: start: 2013
  3. METFORMIN [Suspect]
     Indication: GLUCOSE TOLERANCE IMPAIRED
     Dosage: 500MG IN THE MORNING AND 1000MG (500MG X 2 TABLETS) IN THE EVENING
     Dates: start: 2013
  4. LEVETIRACETAM [Suspect]
     Indication: PRODUCT USED FOR UNKNOWN INDICATION
     Dosage: 500 MG (250 MG, 2 IN 1 D)
     Route: 048
     Dates: start: 2013
  5. SIMVASTATIN [Suspect]
     Indication: PRODUCT USED FOR UNKNOWN INDICATION
     Route: 048
     Dates: start: 2013
  6. ZIPRASIDONE HCL [Suspect]
     Indication: PRODUCT USED FOR UNKNOWN INDICATION
     Dosage: 80MG IN THE MORNING AND 160MG (80MG X 2) AT NIGHT
     Dates: start: 2013
  7. PROPANOLOL HCL [Suspect]
     Indication: PRODUCT USED FOR UNKNOWN INDICATION
     Route: 048
     Dates: start: 2013
  8. ZOCOR [Suspect]
     Indication: PRODUCT USED FOR UNKNOWN INDICATION
     Dates: start: 2013
  9. LOFIBRA [Suspect]
     Indication: BLOOD CHOLESTEROL ABNORMAL
     Dates: start: 2013
  10. VALPROIC ACID [Suspect]
     Indication: PRODUCT USED FOR UNKNOWN INDICATION
     Dates: start: 2013
  11. DIPHENHYDRAMINE [Suspect]
     Indication: PRODUCT USED FOR UNKNOWN INDICATION
     Dates: start: 2013
  12. ANASTROZOLE [Suspect]
     Indication: PRODUCT USED FOR UNKNOWN INDICATION
     Dosage: (1 MG, 1 D)
     Dates: start: 2013
  13. DIVALPROEX [Suspect]
     Indication: PRODUCT USED FOR UNKNOWN INDICATION
     Dosage: 750 MG (250MG X 3 TABLETS)
     Dates: start: 2013
  14. FENOFIBRATE [Suspect]
     Indication: PRODUCT USED FOR UNKNOWN INDICATION
     Dosage: (200 MG, 1 D)
     Route: 048
     Dates: start: 2013
  15. SALSALATE [Suspect]
     Indication: ARTHRALGIA
     Route: 048
     Dates: start: 2013

REACTIONS (5)
  - Accidental death [None]
  - Toxicity to various agents [None]
  - Intentional drug misuse [None]
  - Drug interaction [None]
  - Wrong technique in drug usage process [None]
